FAERS Safety Report 10257699 (Version 1)
Quarter: 2014Q2

REPORT INFORMATION
  Report Type: Spontaneous
  Country: GB (occurrence: None)
  Receive Date: 20140620
  Receipt Date: 20140620
  Transmission Date: 20141212
  Serious: Yes (Hospitalization)
  Sender: FDA-Public Use
  Company Number: 2392432

PATIENT
  Age: 65 Year
  Sex: Male

DRUGS (17)
  1. MEROPENEM [Suspect]
     Indication: PNEUMONIA
     Route: 042
     Dates: start: 20140523, end: 20140526
  2. THEOPHYLLINE [Suspect]
     Indication: CHRONIC OBSTRUCTIVE PULMONARY DISEASE
     Route: 048
     Dates: end: 20140527
  3. ASPIRIN [Concomitant]
  4. CARBOCISTEINE [Concomitant]
  5. DIAZEPAM [Concomitant]
  6. DILTIAZEM [Concomitant]
  7. IPRATROPIUM [Concomitant]
  8. ISOSORBIDE [Concomitant]
  9. LANSOPRAZOLE [Concomitant]
  10. NICORANDIL [Concomitant]
  11. OXYBUTYNIN [Concomitant]
  12. PRASUGREL [Concomitant]
  13. PREDNISOLONE [Concomitant]
  14. QUININE [Concomitant]
  15. RAMIPRIL [Concomitant]
  16. SALBUTAMOL [Concomitant]
  17. SIMVASTATIN [Concomitant]

REACTIONS (4)
  - Unresponsive to stimuli [None]
  - Tonic clonic movements [None]
  - Loss of consciousness [None]
  - Convulsion [None]
